FAERS Safety Report 11761921 (Version 1)
Quarter: 2015Q4

REPORT INFORMATION
  Report Type: Spontaneous
  Country: BR (occurrence: BR)
  Receive Date: 20151120
  Receipt Date: 20151120
  Transmission Date: 20160304
  Serious: Yes (Other)
  Sender: FDA-Public Use
  Company Number: BR-ASTRAZENECA-2015SF11259

PATIENT
  Age: 22175 Day
  Sex: Female
  Weight: 81 kg

DRUGS (6)
  1. DEPURA [Concomitant]
     Active Substance: CHOLECALCIFEROL
     Indication: SUPPLEMENTATION THERAPY
     Dosage: DAILY
     Route: 048
  2. LOSARTAN. [Concomitant]
     Active Substance: LOSARTAN
     Indication: HYPERTENSION
     Dosage: DAILY
     Dates: start: 2013
  3. PROSSO [Concomitant]
     Indication: OSTEOPENIA
     Dosage: DAILY
     Route: 048
     Dates: start: 201505
  4. PROSSO [Concomitant]
     Indication: OSTEOARTHRITIS
     Dosage: DAILY
     Route: 048
     Dates: start: 201505
  5. VANNAIR [Suspect]
     Active Substance: BUDESONIDE\FORMOTEROL FUMARATE DIHYDRATE
     Indication: SLEEP APNOEA SYNDROME
     Dosage: 160/4.5 MCG; DAILY
     Route: 055
     Dates: start: 201509
  6. VANNAIR [Suspect]
     Active Substance: BUDESONIDE\FORMOTEROL FUMARATE DIHYDRATE
     Indication: RESPIRATORY DISORDER
     Dosage: 160/4.5 MCG; DAILY
     Route: 055
     Dates: start: 201509

REACTIONS (4)
  - Foot fracture [Recovering/Resolving]
  - Tooth fracture [Not Recovered/Not Resolved]
  - Fall [Recovered/Resolved with Sequelae]
  - Retinal vascular occlusion [Recovered/Resolved]

NARRATIVE: CASE EVENT DATE: 20150916
